FAERS Safety Report 23951442 (Version 1)
Quarter: 2024Q2

REPORT INFORMATION
  Report Type: Spontaneous
  Country: US (occurrence: None)
  Receive Date: 20240607
  Receipt Date: 20240607
  Transmission Date: 20240716
  Serious: Yes (Hospitalization)
  Sender: FDA-Public Use
  Company Number: None

PATIENT
  Age: 83 Year
  Sex: Male
  Weight: 90 kg

DRUGS (1)
  1. EMPAGLIFLOZIN [Suspect]
     Active Substance: EMPAGLIFLOZIN
     Indication: Diabetes mellitus
     Dosage: FREQUENCY : DAILY;?
     Route: 048
     Dates: start: 20240501, end: 20240603

REACTIONS (7)
  - Pyrexia [None]
  - Scrotal ulcer [None]
  - Scrotal infection [None]
  - Culture positive [None]
  - Bacterial infection [None]
  - Streptococcus test positive [None]
  - Gram stain positive [None]

NARRATIVE: CASE EVENT DATE: 20240603
